FAERS Safety Report 10498153 (Version 1)
Quarter: 2014Q4

REPORT INFORMATION
  Report Type: Spontaneous
  Country: US (occurrence: None)
  Receive Date: 20141002
  Receipt Date: 20141002
  Transmission Date: 20150528
  Serious: Yes (Hospitalization)
  Sender: FDA-Public Use
  Company Number: VAL_03459_2014

PATIENT
  Sex: Male

DRUGS (13)
  1. CALCIUM CARBONATE. [Concomitant]
     Active Substance: CALCIUM CARBONATE
  2. DITROPAN [Concomitant]
     Active Substance: OXYBUTYNIN CHLORIDE
  3. NUTROPIN AQ [Suspect]
     Active Substance: SOMATROPIN
     Indication: CHRONIC KIDNEY DISEASE
     Route: 058
     Dates: start: 20050426
  4. FERROUS SULFATE [Concomitant]
     Active Substance: FERROUS SULFATE\FERROUS SULFATE, DRIED
  5. CLONIDINE. [Concomitant]
     Active Substance: CLONIDINE
  6. ABILIFY [Concomitant]
     Active Substance: ARIPIPRAZOLE
  7. SODIUM BICARBONATE. [Concomitant]
     Active Substance: SODIUM BICARBONATE
  8. PREVACID [Concomitant]
     Active Substance: LANSOPRAZOLE
  9. TESTOSTERONE. [Concomitant]
     Active Substance: TESTOSTERONE
  10. CALCITRIOL. [Suspect]
     Active Substance: CALCITRIOL
     Indication: PRODUCT USED FOR UNKNOWN INDICATION
  11. PROCARDIA [Concomitant]
     Active Substance: NIFEDIPINE
  12. ZOFRAN /00955301/ [Concomitant]
     Active Substance: ONDANSETRON HYDROCHLORIDE
  13. ZOLOFT [Concomitant]
     Active Substance: SERTRALINE HYDROCHLORIDE

REACTIONS (3)
  - Constipation [None]
  - Postoperative ileus [None]
  - Hypertension [None]
